FAERS Safety Report 17458507 (Version 1)
Quarter: 2020Q1

REPORT INFORMATION
  Report Type: Spontaneous
  Country: US (occurrence: US)
  Receive Date: 20200225
  Receipt Date: 20200225
  Transmission Date: 20200409
  Serious: Yes (Hospitalization, Other)
  Sender: FDA-Public Use
  Company Number: US-ALEMBIC PHARMACUETICALS LIMITED-2020SCAL000077

PATIENT

DRUGS (3)
  1. AZATHIOPRINE. [Concomitant]
     Active Substance: AZATHIOPRINE
     Indication: PRODUCT USED FOR UNKNOWN INDICATION
     Dosage: UNK
  2. OSELTAMIVIR PHOSPHATE. [Suspect]
     Active Substance: OSELTAMIVIR PHOSPHATE
     Indication: INFLUENZA
     Dosage: UNK
  3. HYDROXYCHLOROQUINE [Concomitant]
     Active Substance: HYDROXYCHLOROQUINE
     Indication: SYSTEMIC LUPUS ERYTHEMATOSUS
     Dosage: UNK

REACTIONS (11)
  - Drug-induced liver injury [Recovering/Resolving]
  - Hyperbilirubinaemia [Recovering/Resolving]
  - Aspartate aminotransferase increased [Recovering/Resolving]
  - Alanine aminotransferase increased [Recovering/Resolving]
  - Stevens-Johnson syndrome [Recovering/Resolving]
  - Pneumonia [Recovering/Resolving]
  - Rash [Recovering/Resolving]
  - Hepatitis cholestatic [Recovering/Resolving]
  - Hepatocellular injury [Recovering/Resolving]
  - Blood alkaline phosphatase increased [Recovering/Resolving]
  - Toxic epidermal necrolysis [Recovering/Resolving]
